FAERS Safety Report 23255228 (Version 1)
Quarter: 2023Q4

REPORT INFORMATION
  Report Type: Spontaneous
  Country: US (occurrence: US)
  Receive Date: 20231203
  Receipt Date: 20231203
  Transmission Date: 20240109
  Serious: No
  Sender: FDA-Public Use
  Company Number: US-AMNEAL PHARMACEUTICALS-2023-AMRX-02298

PATIENT
  Age: 18 Year
  Sex: Female

DRUGS (1)
  1. ISOTRETINOIN [Suspect]
     Active Substance: ISOTRETINOIN
     Indication: Product used for unknown indication
     Dosage: UNK
     Route: 048
     Dates: start: 20230501, end: 20230623

REACTIONS (5)
  - Tunnel vision [Unknown]
  - Metamorphopsia [Unknown]
  - Headache [Unknown]
  - Tinnitus [Unknown]
  - Initial insomnia [Unknown]

NARRATIVE: CASE EVENT DATE: 20230623
